FAERS Safety Report 5669506-1 (Version None)
Quarter: 2008Q1

REPORT INFORMATION
  Report Type: 
  Country: None (occurrence: None)
  Receive Date: 20080317
  Receipt Date: 20080307
  Transmission Date: 20080703
  Serious: Yes (Other)
  Sender: FDA-Public Use
  Company Number: JP-ASTRAZENECA-2008AP01822

PATIENT
  Age: 30743 Day
  Sex: Female
  Weight: 33 kg

DRUGS (8)
  1. CRESTOR [Suspect]
     Indication: HYPERCHOLESTEROLAEMIA
     Route: 048
     Dates: start: 20080221, end: 20080222
  2. PROTECADIN [Concomitant]
     Route: 048
     Dates: start: 20061010
  3. FOIPAN [Concomitant]
     Route: 048
     Dates: start: 20061010
  4. URSO 250 [Concomitant]
     Route: 048
     Dates: start: 20061010
  5. GASMOTIN [Concomitant]
     Route: 048
     Dates: start: 20061010
  6. KAMAG G [Concomitant]
     Route: 048
     Dates: start: 20061010
  7. NU-LOTAN [Concomitant]
     Route: 048
     Dates: start: 20061010
  8. PRIMPERAN INJ [Concomitant]
     Route: 048
     Dates: start: 20061010

REACTIONS (1)
  - URINARY RETENTION [None]
